FAERS Safety Report 7575107-0 (Version None)
Quarter: 2011Q2

REPORT INFORMATION
  Report Type: 
  Country: None (occurrence: None)
  Receive Date: 20110627
  Receipt Date: 20110622
  Transmission Date: 20111010
  Serious: Yes (Hospitalization, Other)
  Sender: FDA-Public Use
  Company Number: US-PFIZER INC-2011039579

PATIENT
  Sex: Female

DRUGS (4)
  1. FLUTICASONE [Concomitant]
     Indication: HYPERSENSITIVITY
     Dosage: AS NEEDED
     Dates: start: 20070101
  2. CHANTIX [Suspect]
     Indication: SMOKING CESSATION THERAPY
     Dosage: UNK
     Dates: start: 20090501, end: 20090601
  3. BENADRYL [Concomitant]
     Indication: HYPERSENSITIVITY
     Dosage: AS NEEDED
     Dates: start: 20070101
  4. NASONEX [Concomitant]
     Indication: HYPERSENSITIVITY
     Dosage: AS NEEDED
     Dates: start: 20070101

REACTIONS (8)
  - INSOMNIA [None]
  - ANXIETY [None]
  - SUICIDE ATTEMPT [None]
  - AGITATION [None]
  - AMNESIA [None]
  - INTENTIONAL OVERDOSE [None]
  - ABNORMAL DREAMS [None]
  - DEPRESSION [None]
